FAERS Safety Report 15990089 (Version 1)
Quarter: 2019Q1

REPORT INFORMATION
  Report Type: Spontaneous
  Country: US (occurrence: US)
  Receive Date: 20190221
  Receipt Date: 20190221
  Transmission Date: 20190418
  Serious: No
  Sender: FDA-Public Use
  Company Number: US-PFIZER INC-2018395327

PATIENT
  Age: 9 Year
  Sex: Female
  Weight: 26.99 kg

DRUGS (1)
  1. XALKORI [Suspect]
     Active Substance: CRIZOTINIB
     Indication: INFLAMMATORY MYOFIBROBLASTIC TUMOUR
     Dosage: 250 MG, 2X/DAY
     Route: 048
     Dates: start: 20181001

REACTIONS (3)
  - Insomnia [Recovering/Resolving]
  - Intentional product misuse [Unknown]
  - Oesophagitis [Recovering/Resolving]

NARRATIVE: CASE EVENT DATE: 20190125
